FAERS Safety Report 8575197-2 (Version None)
Quarter: 2012Q2

REPORT INFORMATION
  Report Type: 
  Country: None (occurrence: None)
  Receive Date: 20120423
  Receipt Date: 20090806
  Transmission Date: 20120825
  Serious: Yes (Other)
  Sender: FDA-Public Use
  Company Number: PHEH2009US09055

PATIENT
  Sex: Female

DRUGS (2)
  1. TRANSFUSIONS (NO INGREDIENTS/SUBSTANCES) [Concomitant]
  2. EXJADE [Suspect]
     Indication: IRON OVERLOAD
     Dosage: 1500 MG DAILY
     Dates: end: 20090501

REACTIONS (4)
  - DYSPEPSIA [None]
  - HAEMOGLOBIN DECREASED [None]
  - DISCOMFORT [None]
  - DIARRHOEA [None]
